FAERS Safety Report 6585562-0 (Version None)
Quarter: 2010Q1

REPORT INFORMATION
  Report Type: 
  Country: None (occurrence: None)
  Receive Date: 20100217
  Receipt Date: 20100203
  Transmission Date: 20100710
  Serious: Yes (Hospitalization)
  Sender: FDA-Public Use
  Company Number: JP-ROCHE-657367

PATIENT
  Sex: Male

DRUGS (5)
  1. AVASTIN [Suspect]
     Indication: RECTAL CANCER RECURRENT
     Route: 041
     Dates: start: 20090911, end: 20090911
  2. 5-FU [Suspect]
     Indication: RECTAL CANCER RECURRENT
     Dosage: ROUTE: INTRAVENOUS BOLUS
     Route: 042
     Dates: start: 20090911, end: 20090911
  3. 5-FU [Suspect]
     Dosage: ROUTE: INTRAVENOUS DRIP
     Route: 042
     Dates: start: 20090911, end: 20090911
  4. CALCIUM LEVOFOLINATE [Concomitant]
     Route: 041
     Dates: start: 20090911, end: 20090911
  5. IRINOTECAN HYDROCHLORIDE [Concomitant]
     Route: 041
     Dates: start: 20090911, end: 20090911

REACTIONS (1)
  - LEUKOENCEPHALOPATHY [None]
